FAERS Safety Report 13931507 (Version 3)
Quarter: 2017Q4

REPORT INFORMATION
  Report Type: Report from Study
  Country: US (occurrence: US)
  Receive Date: 20170904
  Receipt Date: 20171124
  Transmission Date: 20180320
  Serious: Yes (Other)
  Sender: FDA-Public Use
  Company Number: PHEH2017US028138

PATIENT
  Sex: Male

DRUGS (8)
  1. COSENTYX [Suspect]
     Active Substance: SECUKINUMAB
     Indication: PRODUCT USED FOR UNKNOWN INDICATION
     Dosage: UNK
     Route: 065
  2. MULTI VITAMIN [Concomitant]
     Active Substance: VITAMINS
     Indication: PRODUCT USED FOR UNKNOWN INDICATION
     Dosage: UNK
     Route: 065
  3. VITAMIN C [Concomitant]
     Active Substance: ASCORBIC ACID
     Indication: PRODUCT USED FOR UNKNOWN INDICATION
     Dosage: UNK
     Route: 065
  4. CADURAMIN [Concomitant]
     Indication: PRODUCT USED FOR UNKNOWN INDICATION
     Dosage: 4 MG, UNK
     Route: 065
  5. CLARITIN-D NOS [Concomitant]
     Active Substance: LORATADINE\PSEUDOEPHEDRINE SULFATE
     Indication: PRODUCT USED FOR UNKNOWN INDICATION
     Route: 065
  6. VITAMIN B12 [Concomitant]
     Active Substance: CYANOCOBALAMIN
     Indication: PRODUCT USED FOR UNKNOWN INDICATION
     Dosage: UNK
     Route: 065
  7. LOSARTAN. [Concomitant]
     Active Substance: LOSARTAN
     Indication: PRODUCT USED FOR UNKNOWN INDICATION
     Dosage: UNK
     Route: 065
  8. VICODIN [Concomitant]
     Active Substance: ACETAMINOPHEN\HYDROCODONE BITARTRATE
     Indication: PRODUCT USED FOR UNKNOWN INDICATION
     Dosage: UNK
     Route: 065

REACTIONS (22)
  - Insomnia [Unknown]
  - Oropharyngeal pain [Unknown]
  - Erythema [Unknown]
  - Skin burning sensation [Not Recovered/Not Resolved]
  - Decreased immune responsiveness [Unknown]
  - Psoriatic arthropathy [Unknown]
  - Osteoarthritis [Unknown]
  - Mood altered [Unknown]
  - Oral pain [Unknown]
  - Skin ulcer [Unknown]
  - Drug ineffective [Unknown]
  - Abdominal discomfort [Unknown]
  - Arthralgia [Not Recovered/Not Resolved]
  - Suicidal ideation [Unknown]
  - Dry skin [Unknown]
  - Incorrect dose administered [Unknown]
  - Blood testosterone decreased [Unknown]
  - Ear pain [Unknown]
  - Fatigue [Unknown]
  - Skin plaque [Unknown]
  - Skin exfoliation [Unknown]
  - Pruritus [Not Recovered/Not Resolved]
